FAERS Safety Report 26082798 (Version 1)
Quarter: 2025Q4

REPORT INFORMATION
  Report Type: Spontaneous
  Country: GB (occurrence: GB)
  Receive Date: 20251124
  Receipt Date: 20251124
  Transmission Date: 20260117
  Serious: Yes (Hospitalization, Other)
  Sender: TEVA
  Company Number: None

PATIENT
  Age: 37 Year
  Sex: Female
  Weight: 80 kg

DRUGS (5)
  1. LISDEXAMFETAMINE [Suspect]
     Active Substance: LISDEXAMFETAMINE
     Indication: Attention deficit hyperactivity disorder
     Route: 065
     Dates: start: 20241113, end: 20251110
  2. DIAZEPAM [Concomitant]
     Active Substance: DIAZEPAM
     Indication: Anxiety
     Route: 065
     Dates: start: 20251105
  3. PROMETHAZINE [Concomitant]
     Active Substance: PROMETHAZINE HYDROCHLORIDE
     Indication: Insomnia
     Route: 065
     Dates: start: 20250619
  4. COCODAMOL [Concomitant]
     Active Substance: ACETAMINOPHEN\CODEINE PHOSPHATE
     Indication: Pain
     Route: 065
     Dates: start: 20250718
  5. QUETIAPINE [Concomitant]
     Active Substance: QUETIAPINE
     Indication: Post-traumatic stress disorder
     Route: 065
     Dates: start: 20250122

REACTIONS (3)
  - Arrhythmia [Not Recovered/Not Resolved]
  - Circulatory collapse [Unknown]
  - Supraventricular extrasystoles [Unknown]

NARRATIVE: CASE EVENT DATE: 20251109
